FAERS Safety Report 22529421 (Version 5)
Quarter: 2025Q4

REPORT INFORMATION
  Report Type: Report from Study
  Country: US (occurrence: US)
  Receive Date: 20230607
  Receipt Date: 20251203
  Transmission Date: 20260117
  Serious: Yes (Hospitalization, Other)
  Sender: ABBVIE
  Company Number: US-ABBVIE-4330309

PATIENT
  Sex: Female
  Weight: 73.028 kg

DRUGS (14)
  1. IMBRUVICA [Suspect]
     Active Substance: IBRUTINIB
     Indication: Chronic lymphocytic leukaemia
     Route: 048
     Dates: start: 20201109
  2. IMBRUVICA [Suspect]
     Active Substance: IBRUTINIB
     Indication: Chronic lymphocytic leukaemia
     Route: 048
     Dates: start: 202103
  3. IMBRUVICA [Suspect]
     Active Substance: IBRUTINIB
     Indication: Chronic lymphocytic leukaemia
     Route: 048
     Dates: end: 202103
  4. IMBRUVICA [Suspect]
     Active Substance: IBRUTINIB
     Indication: Chronic lymphocytic leukaemia
     Route: 048
     Dates: start: 202210
  5. NIFEDIPINE [Concomitant]
     Active Substance: NIFEDIPINE
     Indication: Hypertension
  6. VALSARTAN [Concomitant]
     Active Substance: VALSARTAN
     Indication: Hypertension
     Dosage: FORM STRENGTH: 220 MILLIGRAM
  7. OMEPRAZOLE [Concomitant]
     Active Substance: OMEPRAZOLE
     Indication: Gastrooesophageal reflux disease
  8. ROSUVASTATIN [Concomitant]
     Active Substance: ROSUVASTATIN
     Indication: Blood cholesterol increased
  9. NITROGLYCERIN [Concomitant]
     Active Substance: NITROGLYCERIN
     Indication: Chest pain
  10. GRALISE [Suspect]
     Active Substance: GABAPENTIN
     Indication: Chronic lymphocytic leukaemia
     Route: 065
  11. GRALISE [Suspect]
     Active Substance: GABAPENTIN
     Indication: Chronic lymphocytic leukaemia
     Route: 065
  12. FUROSEMIDE [Concomitant]
     Active Substance: FUROSEMIDE
     Indication: Urinary retention
  13. FAMOTIDINE [Concomitant]
     Active Substance: FAMOTIDINE
     Indication: Product used for unknown indication
  14. LYSINE [Concomitant]
     Active Substance: LYSINE
     Indication: Product used for unknown indication

REACTIONS (30)
  - Heart rate irregular [Recovered/Resolved]
  - Dizziness [Recovered/Resolved]
  - Swollen tongue [Recovering/Resolving]
  - Respiratory disorder [Unknown]
  - Oral blood blister [Unknown]
  - Dry mouth [Recovered/Resolved]
  - Dry mouth [Not Recovered/Not Resolved]
  - Dry mouth [Recovering/Resolving]
  - Mouth swelling [Unknown]
  - Tongue oedema [Not Recovered/Not Resolved]
  - Implantable cardiac monitor insertion [Unknown]
  - Aphasia [Recovered/Resolved]
  - Tremor [Recovered/Resolved]
  - Urinary tract infection [Not Recovered/Not Resolved]
  - Glossitis [Unknown]
  - COVID-19 [Unknown]
  - Cough [Recovered/Resolved]
  - Taste disorder [Unknown]
  - Cough [Not Recovered/Not Resolved]
  - Respiratory disorder [Recovered/Resolved]
  - Decreased appetite [Recovered/Resolved]
  - Syncope [Recovered/Resolved]
  - Pneumonia [Recovered/Resolved]
  - Lip swelling [Unknown]
  - Blood blister [Unknown]
  - Oral pain [Unknown]
  - Glossodynia [Unknown]
  - Chronic lymphocytic leukaemia [Unknown]
  - Oral discomfort [Unknown]
  - Petechiae [Unknown]

NARRATIVE: CASE EVENT DATE: 20210101
